FAERS Safety Report 13336565 (Version 3)
Quarter: 2017Q4

REPORT INFORMATION
  Report Type: Spontaneous
  Country: US (occurrence: US)
  Receive Date: 20170314
  Receipt Date: 20171115
  Transmission Date: 20180320
  Serious: No
  Sender: FDA-Public Use
  Company Number: US-JAZZ-2017-US-001769

PATIENT
  Sex: Female

DRUGS (35)
  1. DIFLUCAN [Concomitant]
     Active Substance: FLUCONAZOLE
  2. ALLEGRA ALLERGY [Concomitant]
     Active Substance: FEXOFENADINE HYDROCHLORIDE
  3. CODEINE SULFATE. [Concomitant]
     Active Substance: CODEINE SULFATE
  4. DILAUDID [Concomitant]
     Active Substance: HYDROMORPHONE HYDROCHLORIDE
  5. MSM [Concomitant]
     Active Substance: DIMETHYL SULFONE
  6. MECLIZINE [Concomitant]
     Active Substance: MECLIZINE HYDROCHLORIDE
  7. HYDROXYZINE HCL [Concomitant]
     Active Substance: HYDROXYZINE HYDROCHLORIDE
  8. TESTOSTERONE/ESTROGEN [Concomitant]
     Active Substance: ESTROGENS\TESTOSTERONE
  9. TIZANIDINE HCL [Concomitant]
     Active Substance: TIZANIDINE HYDROCHLORIDE
  10. XYREM [Suspect]
     Active Substance: SODIUM OXYBATE
     Indication: NARCOLEPSY
     Dosage: 2.25G, BID
     Route: 048
     Dates: start: 201512, end: 2016
  11. XYREM [Suspect]
     Active Substance: SODIUM OXYBATE
     Dosage: 2.25G, BID
     Route: 048
     Dates: start: 201611
  12. PRELIEF [Concomitant]
     Active Substance: CALCIUM GLYCEROPHOSPHATE
  13. OPANA [Concomitant]
     Active Substance: OXYMORPHONE HYDROCHLORIDE
  14. XANAX [Concomitant]
     Active Substance: ALPRAZOLAM
  15. MARCAINE [Concomitant]
     Active Substance: BUPIVACAINE HYDROCHLORIDE
  16. NASALCROM [Concomitant]
     Active Substance: CROMOLYN SODIUM
  17. TOPROL XL [Concomitant]
     Active Substance: METOPROLOL SUCCINATE
  18. METOPROLOL TARTRATE. [Concomitant]
     Active Substance: METOPROLOL TARTRATE
  19. SUDAFED [Concomitant]
     Active Substance: PSEUDOEPHEDRINE HYDROCHLORIDE
  20. ACYCLOVIR                          /00587301/ [Concomitant]
     Active Substance: ACYCLOVIR
  21. METOPROLOL. [Suspect]
     Active Substance: METOPROLOL
     Indication: PRODUCT USED FOR UNKNOWN INDICATION
  22. AUGMENTIN [Concomitant]
     Active Substance: AMOXICILLIN\CLAVULANATE POTASSIUM
  23. BUSPIRONE HCL [Concomitant]
     Active Substance: BUSPIRONE HYDROCHLORIDE
  24. AZO BLADDER CONTROL WITH GO LESS [Concomitant]
  25. PROGESTERONE. [Concomitant]
     Active Substance: PROGESTERONE
  26. XYREM [Suspect]
     Active Substance: SODIUM OXYBATE
     Dosage: 3.25 G, BID
     Route: 048
     Dates: start: 2016, end: 2016
  27. LIDOCAINE HCL [Concomitant]
     Active Substance: LIDOCAINE HYDROCHLORIDE
  28. PHENTERMINE. [Concomitant]
     Active Substance: PHENTERMINE
  29. PROAIR HFA [Concomitant]
     Active Substance: ALBUTEROL SULFATE
  30. ADDERALL [Suspect]
     Active Substance: AMPHETAMINE ASPARTATE\AMPHETAMINE SULFATE\DEXTROAMPHETAMINE SACCHARATE\DEXTROAMPHETAMINE SULFATE
     Indication: PRODUCT USED FOR UNKNOWN INDICATION
  31. MACROBID [Concomitant]
     Active Substance: NITROFURANTOIN\NITROFURANTOIN MONOHYDRATE
  32. VITAMIN D3 [Concomitant]
     Active Substance: CHOLECALCIFEROL
  33. ASPIRIN 81 [Concomitant]
     Active Substance: ASPIRIN
  34. OXYTROL FOR WOMEN [Concomitant]
     Active Substance: OXYBUTYNIN
  35. ZYRTEC [Concomitant]
     Active Substance: CETIRIZINE HYDROCHLORIDE

REACTIONS (3)
  - Hyperhidrosis [Not Recovered/Not Resolved]
  - Epstein-Barr virus test positive [Not Recovered/Not Resolved]
  - Alopecia [Not Recovered/Not Resolved]

NARRATIVE: CASE EVENT DATE: 2016
